FAERS Safety Report 9521417 (Version 1)
Quarter: 2013Q1

REPORT INFORMATION
  Report Type: Spontaneous
  Country: US (occurrence: None)
  Receive Date: 20130305
  Receipt Date: 20130305
  Transmission Date: 20140127
  Serious: Yes (Hospitalization)
  Sender: FDA-Public Use
  Company Number: 163-21880-12022240

PATIENT
  Age: 78 Year
  Sex: Female

DRUGS (9)
  1. REVLIMID [Suspect]
     Indication: PLASMA CELL MYELOMA
     Dosage: 20 MG, QD X 21 D/OFF 7D, PO
     Route: 048
     Dates: start: 20110917
  2. IMODIUM A-D (LOPERAMIDE HYDROCHLORIDE) (LIQUID) [Concomitant]
  3. DECADRON (DEXAMETHASONE) (TABLETS) [Concomitant]
  4. CENTRUM (CENTRUM) (TABLETS) [Concomitant]
  5. VITAMIN C (ASCORBIC ACID) (CHEWABLE TABLET) [Concomitant]
  6. CALCIUM (CALCIUM) (CHEWABLE TABLET) [Concomitant]
  7. ARIMIDEX (ANASTROZOLE) (TABLETS0 [Concomitant]
  8. HYDROCODONE/APAP (VICODIN) (TABLETS) [Concomitant]
  9. ENALAPRIL(ENALAPRIL) (TABLETS) [Concomitant]

REACTIONS (1)
  - Pneumonia [None]
